FAERS Safety Report 13252018 (Version 1)
Quarter: 2017Q1

REPORT INFORMATION
  Report Type: Spontaneous
  Country: DE (occurrence: DE)
  Receive Date: 20170220
  Receipt Date: 20170220
  Transmission Date: 20170428
  Serious: Yes (Other)
  Sender: FDA-Public Use
  Company Number: DE-JNJFOC-20170209998

PATIENT
  Sex: Female

DRUGS (2)
  1. REGAINE [Suspect]
     Active Substance: MINOXIDIL
     Indication: PRODUCT USED FOR UNKNOWN INDICATION
     Route: 061
  2. REGAINE [Suspect]
     Active Substance: MINOXIDIL
     Route: 061

REACTIONS (4)
  - Pharyngeal oedema [Unknown]
  - Asphyxia [Unknown]
  - Drug hypersensitivity [Unknown]
  - Swollen tongue [Unknown]
